FAERS Safety Report 19916793 (Version 1)
Quarter: 2021Q4

REPORT INFORMATION
  Report Type: Report from Study
  Country: US (occurrence: US)
  Receive Date: 20211005
  Receipt Date: 20211005
  Transmission Date: 20220303
  Serious: Yes (Other)
  Sender: FDA-Public Use
  Company Number: US-SANOFI-00788540

PATIENT
  Age: 67 Year
  Sex: Female

DRUGS (2)
  1. TERIFLUNOMIDE [Suspect]
     Active Substance: TERIFLUNOMIDE
     Dosage: UNK
  2. PREGABALIN [Concomitant]
     Active Substance: PREGABALIN
     Indication: Hypoaesthesia

REACTIONS (3)
  - Diabetes mellitus [Unknown]
  - Blood glucose increased [Recovering/Resolving]
  - Therapeutic response decreased [Unknown]
